FAERS Safety Report 20486500 (Version 1)
Quarter: 2022Q1

REPORT INFORMATION
  Report Type: Spontaneous
  Country: US (occurrence: US)
  Receive Date: 20220217
  Receipt Date: 20220217
  Transmission Date: 20220423
  Serious: Yes (Other)
  Sender: FDA-Public Use
  Company Number: US-GLAXOSMITHKLINE-US2022GSK025162

PATIENT
  Sex: Female

DRUGS (20)
  1. ZANTAC [Suspect]
     Active Substance: RANITIDINE HYDROCHLORIDE
     Indication: Erosive oesophagitis
     Dosage: UNKNOWN, ONLY WHEN SHE RAN OUT RENATIDINE PILLS
     Route: 065
     Dates: start: 199901, end: 201812
  2. ZANTAC [Suspect]
     Active Substance: RANITIDINE HYDROCHLORIDE
     Indication: Gastrooesophageal reflux disease
  3. ZANTAC [Suspect]
     Active Substance: RANITIDINE HYDROCHLORIDE
     Indication: Dyspepsia
  4. ZANTAC [Suspect]
     Active Substance: RANITIDINE HYDROCHLORIDE
     Indication: Erosive oesophagitis
     Dosage: 75 MG, QD
     Route: 065
     Dates: start: 199201, end: 201812
  5. ZANTAC [Suspect]
     Active Substance: RANITIDINE HYDROCHLORIDE
     Indication: Gastrooesophageal reflux disease
     Dosage: 150 MG, QD
     Route: 065
     Dates: start: 199201, end: 201812
  6. ZANTAC [Suspect]
     Active Substance: RANITIDINE HYDROCHLORIDE
     Indication: Dyspepsia
     Dosage: 75 MG, QD
     Route: 065
     Dates: start: 199201, end: 201812
  7. ZANTAC [Suspect]
     Active Substance: RANITIDINE HYDROCHLORIDE
     Dosage: 150 MG, BID
     Route: 065
     Dates: start: 199201, end: 201812
  8. ZANTAC [Suspect]
     Active Substance: RANITIDINE HYDROCHLORIDE
     Indication: Erosive oesophagitis
     Dosage: 75 MG, QD
     Route: 065
     Dates: start: 199201, end: 201812
  9. ZANTAC [Suspect]
     Active Substance: RANITIDINE HYDROCHLORIDE
     Indication: Gastrooesophageal reflux disease
     Dosage: 150 MG, QD
     Route: 065
     Dates: start: 199201, end: 201812
  10. ZANTAC [Suspect]
     Active Substance: RANITIDINE HYDROCHLORIDE
     Indication: Dyspepsia
     Dosage: 75 MG, QD
     Route: 065
     Dates: start: 199201, end: 201812
  11. ZANTAC [Suspect]
     Active Substance: RANITIDINE HYDROCHLORIDE
     Dosage: 150 MG, BID
     Route: 065
     Dates: start: 199201, end: 201812
  12. RANITIDINE [Suspect]
     Active Substance: RANITIDINE
     Indication: Erosive oesophagitis
     Dosage: UNKNOWN AT THIS TIME, OCCASIONAL
     Route: 065
     Dates: start: 199701, end: 201812
  13. RANITIDINE [Suspect]
     Active Substance: RANITIDINE
     Indication: Gastrooesophageal reflux disease
  14. RANITIDINE [Suspect]
     Active Substance: RANITIDINE
     Indication: Dyspepsia
  15. RANITIDINE [Suspect]
     Active Substance: RANITIDINE
     Indication: Erosive oesophagitis
     Dosage: 75 MG, QD
     Route: 065
     Dates: start: 199701, end: 201812
  16. RANITIDINE [Suspect]
     Active Substance: RANITIDINE
     Indication: Gastrooesophageal reflux disease
     Dosage: 2 PILLS EVERY 12 HOURS, QD
     Route: 065
     Dates: start: 199701, end: 201812
  17. RANITIDINE [Suspect]
     Active Substance: RANITIDINE
     Indication: Dyspepsia
  18. RANITIDINE [Suspect]
     Active Substance: RANITIDINE
     Indication: Erosive oesophagitis
     Dosage: 75 MG, QD
     Route: 065
     Dates: start: 199701, end: 201812
  19. RANITIDINE [Suspect]
     Active Substance: RANITIDINE
     Indication: Gastrooesophageal reflux disease
     Dosage: 2 PILLS EVERY 12 HOURS, QD
     Route: 065
     Dates: start: 199701, end: 201812
  20. RANITIDINE [Suspect]
     Active Substance: RANITIDINE
     Indication: Dyspepsia

REACTIONS (3)
  - Colorectal cancer [Unknown]
  - Oesophageal carcinoma [Unknown]
  - Renal cancer [Unknown]
